FAERS Safety Report 19411164 (Version 1)
Quarter: 2021Q2

REPORT INFORMATION
  Report Type: Spontaneous
  Country: FK (occurrence: FK)
  Receive Date: 20210614
  Receipt Date: 20210614
  Transmission Date: 20210717
  Serious: Yes (Hospitalization)
  Sender: FDA-Public Use
  Company Number: None

PATIENT
  Age: 43 Year
  Sex: Female

DRUGS (20)
  1. MOBIC [Concomitant]
     Active Substance: MELOXICAM
  2. CYCLOBENZAPRINE. [Concomitant]
     Active Substance: CYCLOBENZAPRINE
  3. HYDROXYZ HCL [Concomitant]
     Active Substance: HYDROXYZINE HYDROCHLORIDE
  4. LUNESTA [Concomitant]
     Active Substance: ESZOPICLONE
  5. NEXIUM [Concomitant]
     Active Substance: ESOMEPRAZOLE MAGNESIUM
  6. NEURONTIN [Concomitant]
     Active Substance: GABAPENTIN
  7. LEVETIRACETA [Concomitant]
     Active Substance: LEVETIRACETAM
  8. RELPAX [Concomitant]
     Active Substance: ELETRIPTAN HYDROBROMIDE
  9. OXYCODONE [Concomitant]
     Active Substance: OXYCODONE
  10. PROMETHAZINE [Concomitant]
     Active Substance: PROMETHAZINE HYDROCHLORIDE
  11. SEROQUEL [Concomitant]
     Active Substance: QUETIAPINE FUMARATE
  12. ONDANSETRON [Concomitant]
     Active Substance: ONDANSETRON
  13. LAMICATAL [Concomitant]
  14. ZONISAMIDE. [Concomitant]
     Active Substance: ZONISAMIDE
  15. GABAPENTIN. [Concomitant]
     Active Substance: GABAPENTIN
  16. SPRYCEL [Suspect]
     Active Substance: DASATINIB
     Indication: MYELOID LEUKAEMIA
     Route: 048
     Dates: start: 20210120
  17. TRAZODONE [Concomitant]
     Active Substance: TRAZODONE HYDROCHLORIDE
  18. WAL?DRAM [Concomitant]
     Active Substance: DIMENHYDRINATE
  19. LOMOTIL [Concomitant]
     Active Substance: ATROPINE SULFATE\DIPHENOXYLATE HYDROCHLORIDE
  20. VIMPAT [Concomitant]
     Active Substance: LACOSAMIDE

REACTIONS (2)
  - Therapy interrupted [None]
  - Seizure [None]

NARRATIVE: CASE EVENT DATE: 20210502
